FAERS Safety Report 16167753 (Version 1)
Quarter: 2019Q2

REPORT INFORMATION
  Report Type: Other
  Country: FR (occurrence: FR)
  Receive Date: 20190408
  Receipt Date: 20190408
  Transmission Date: 20190711
  Serious: Yes (Death, Hospitalization)
  Sender: FDA-Public Use
  Company Number: FR-ASTELLAS-2019US014597

PATIENT
  Age: 82 Year
  Sex: Female
  Weight: 65 kg

DRUGS (1)
  1. REGADENOSON [Suspect]
     Active Substance: REGADENOSON
     Indication: SCAN MYOCARDIAL PERFUSION
     Dosage: 400 ?G, SINGLE
     Route: 042
     Dates: start: 20190129, end: 20190129

REACTIONS (2)
  - Electrocardiogram abnormal [Fatal]
  - Chest pain [Fatal]

NARRATIVE: CASE EVENT DATE: 20190129
